FAERS Safety Report 6726123-X (Version None)
Quarter: 2010Q2

REPORT INFORMATION
  Report Type: 
  Country: None (occurrence: None)
  Receive Date: 20100514
  Receipt Date: 20100511
  Transmission Date: 20101027
  Serious: Yes (Death, Hospitalization)
  Sender: FDA-Public Use
  Company Number: ES-BRISTOL-MYERS SQUIBB COMPANY-15049901

PATIENT
  Age: 51 Year
  Sex: Male
  Weight: 76 kg

DRUGS (11)
  1. CISPLATIN [Suspect]
     Indication: NON-SMALL CELL LUNG CANCER
     Dosage: ON DAY 1 OF EVERY 21 DAYS
     Route: 042
     Dates: start: 20100202
  2. PEMETREXED DISODIUM [Suspect]
     Indication: NON-SMALL CELL LUNG CANCER
     Dosage: ON DAY 1 OF EVERY 21 DAYS
     Route: 042
     Dates: start: 20100202
  3. FOLIC ACID [Concomitant]
     Dates: start: 20100121
  4. VITAMIN B-12 [Concomitant]
     Dates: start: 20100121
  5. DICLOFENAC [Concomitant]
     Indication: INTERVERTEBRAL DISC PROTRUSION
  6. DEFLAZACORT [Concomitant]
     Indication: PROPHYLAXIS
     Dates: start: 20100121
  7. SERETIDE [Concomitant]
     Indication: PROPHYLAXIS
     Dates: start: 20100121
  8. VENTOLIN [Concomitant]
     Dates: start: 20100121
  9. ENANTYUM [Concomitant]
     Indication: PROPHYLAXIS
     Dates: start: 20100121
  10. ZALDIAR [Concomitant]
     Indication: PROPHYLAXIS
     Dates: start: 20100121
  11. DEXAMETHASONE [Concomitant]
     Dates: start: 20100202

REACTIONS (3)
  - MALIGNANT NEOPLASM PROGRESSION [None]
  - PERICARDIAL EFFUSION [None]
  - PLEURAL EFFUSION [None]
